FAERS Safety Report 7040412-3 (Version None)
Quarter: 2010Q4

REPORT INFORMATION
  Report Type: 
  Country: None (occurrence: None)
  Receive Date: 20101008
  Receipt Date: 20101008
  Transmission Date: 20110411
  Serious: Yes (Other)
  Sender: FDA-Public Use
  Company Number: None

PATIENT
  Age: 68 Year
  Sex: Female
  Weight: 68.0396 kg

DRUGS (3)
  1. ACTOS [Suspect]
     Indication: TYPE 2 DIABETES MELLITUS
     Dosage: 15 MG DAILY ORAL
     Route: 048
     Dates: start: 20100109, end: 20100301
  2. METFORMIN HCL [Concomitant]
  3. TRICOR [Concomitant]

REACTIONS (5)
  - FEELING ABNORMAL [None]
  - HANGOVER [None]
  - LISTLESS [None]
  - MALAISE [None]
  - WITHDRAWAL SYNDROME [None]
